FAERS Safety Report 4502042-4 (Version None)
Quarter: 2004Q4

REPORT INFORMATION
  Report Type: 
  Country: None (occurrence: None)
  Receive Date: 20041116
  Receipt Date: 20041109
  Transmission Date: 20050328
  Serious: Yes (Hospitalization)
  Sender: FDA-Public Use
  Company Number: DE-ABBOTT-04P-062-0280297-00

PATIENT
  Sex: Male
  Weight: 93.7 kg

DRUGS (1)
  1. REDUCTIL 15MG [Suspect]
     Indication: OBESITY
     Route: 048
     Dates: start: 20040701, end: 20040801

REACTIONS (7)
  - ABDOMINAL PAIN UPPER [None]
  - CHOLESTASIS [None]
  - HEPATIC ENZYME INCREASED [None]
  - HEPATITIS [None]
  - HEPATITIS TOXIC [None]
  - NAUSEA [None]
  - OCULAR ICTERUS [None]
